FAERS Safety Report 18109928 (Version 2)
Quarter: 2020Q3

REPORT INFORMATION
  Report Type: Spontaneous
  Country: US (occurrence: US)
  Receive Date: 20200804
  Receipt Date: 20200918
  Transmission Date: 20201103
  Serious: No
  Sender: FDA-Public Use
  Company Number: US-GILEAD-2020-0486821

PATIENT
  Age: 56 Year
  Sex: Male
  Weight: 53 kg

DRUGS (7)
  1. SUSTIVA [Concomitant]
     Active Substance: EFAVIRENZ
     Indication: HIV INFECTION
  2. NORVIR [Concomitant]
     Active Substance: RITONAVIR
     Indication: HIV INFECTION
     Dosage: UNK
  3. TRAMADOL. [Concomitant]
     Active Substance: TRAMADOL
  4. TRUVADA [Suspect]
     Active Substance: EMTRICITABINE\TENOFOVIR DISOPROXIL FUMARATE
     Indication: HIV INFECTION
     Dosage: UNK
     Route: 048
     Dates: start: 2006, end: 2019
  5. MARINOL [ALLOPURINOL] [Concomitant]
     Active Substance: ALLOPURINOL
     Indication: NAUSEA
  6. REYATAZ [Concomitant]
     Active Substance: ATAZANAVIR SULFATE
     Indication: HIV INFECTION
     Dosage: UNK
  7. VITAMIN D3 [Concomitant]
     Active Substance: CHOLECALCIFEROL
     Indication: BONE DENSITY DECREASED
     Dosage: UNK

REACTIONS (6)
  - Anhedonia [Not Recovered/Not Resolved]
  - Pain [Not Recovered/Not Resolved]
  - Osteopenia [Not Recovered/Not Resolved]
  - Anxiety [Not Recovered/Not Resolved]
  - Emotional distress [Not Recovered/Not Resolved]
  - Bone density decreased [Unknown]

NARRATIVE: CASE EVENT DATE: 201002
